FAERS Safety Report 12162083 (Version 1)
Quarter: 2016Q1

REPORT INFORMATION
  Report Type: Spontaneous
  Country: JP (occurrence: JP)
  Receive Date: 20160309
  Receipt Date: 20160309
  Transmission Date: 20160526
  Serious: Yes (Hospitalization)
  Sender: FDA-Public Use
  Company Number: PHJP2015JP019628

PATIENT
  Age: 47 Year
  Sex: Female
  Weight: 53 kg

DRUGS (2)
  1. GILENYA [Suspect]
     Active Substance: FINGOLIMOD HYDROCHLORIDE
     Indication: MULTIPLE SCLEROSIS
     Dosage: 0.5 MG, QD
     Route: 048
     Dates: start: 20140821, end: 20151101
  2. FERROUS CITRATE [Concomitant]
     Active Substance: FERROUS CITRATE
     Indication: IRON DEFICIENCY ANAEMIA
     Dosage: 50 MG, BID
     Route: 048
     Dates: start: 20151005, end: 20151101

REACTIONS (6)
  - Facial pain [Unknown]
  - Immunodeficiency [Recovering/Resolving]
  - Blister [Unknown]
  - Herpes zoster [Recovering/Resolving]
  - Headache [Unknown]
  - Feeling abnormal [Unknown]

NARRATIVE: CASE EVENT DATE: 20151026
